FAERS Safety Report 12682262 (Version 1)
Quarter: 2016Q3

REPORT INFORMATION
  Report Type: Spontaneous
  Country: FR (occurrence: FR)
  Receive Date: 20160824
  Receipt Date: 20160824
  Transmission Date: 20161109
  Serious: Yes (Other)
  Sender: FDA-Public Use
  Company Number: PHHY2016FR114491

PATIENT
  Age: 56 Year
  Sex: Female

DRUGS (14)
  1. CISPLATIN. [Interacting]
     Active Substance: CISPLATIN
     Indication: DISEASE PROGRESSION
     Dosage: 90 MG, UNK
     Route: 065
     Dates: start: 20140806, end: 20140916
  2. PREDNISOLONE. [Concomitant]
     Active Substance: PREDNISOLONE
     Indication: PROPHYLAXIS OF NAUSEA AND VOMITING
     Route: 065
  3. PEMETREXED [Interacting]
     Active Substance: PEMETREXED
     Indication: DISEASE PROGRESSION
  4. ONDANSETRON [Concomitant]
     Active Substance: ONDANSETRON
     Indication: PROPHYLAXIS OF NAUSEA AND VOMITING
     Route: 065
  5. VERAPAMIL [Suspect]
     Active Substance: VERAPAMIL HYDROCHLORIDE
     Indication: HYPERTENSION
     Route: 065
  6. ERLOTINIB [Interacting]
     Active Substance: ERLOTINIB
     Indication: NON-SMALL CELL LUNG CANCER
     Dosage: 150 MG, QD
     Route: 065
     Dates: start: 201402
  7. CISPLATIN. [Interacting]
     Active Substance: CISPLATIN
     Indication: NON-SMALL CELL LUNG CANCER
  8. PEMETREXED [Interacting]
     Active Substance: PEMETREXED
     Indication: METASTASES TO CENTRAL NERVOUS SYSTEM
  9. PEMETREXED [Interacting]
     Active Substance: PEMETREXED
     Indication: NON-SMALL CELL LUNG CANCER
  10. ERLOTINIB [Interacting]
     Active Substance: ERLOTINIB
     Indication: METASTASES TO CENTRAL NERVOUS SYSTEM
  11. APREPITANT. [Interacting]
     Active Substance: APREPITANT
     Indication: PROPHYLAXIS OF NAUSEA AND VOMITING
     Route: 065
  12. PEMETREXED [Interacting]
     Active Substance: PEMETREXED
     Indication: DISEASE PROGRESSION
     Dosage: 600 MG, UNK
     Route: 065
     Dates: start: 20140806, end: 20140916
  13. CISPLATIN. [Interacting]
     Active Substance: CISPLATIN
     Indication: METASTASES TO CENTRAL NERVOUS SYSTEM
  14. CISPLATIN. [Interacting]
     Active Substance: CISPLATIN
     Indication: DISEASE PROGRESSION

REACTIONS (6)
  - Drug interaction [Unknown]
  - Asthenia [Recovered/Resolved]
  - Vomiting [Recovering/Resolving]
  - Nausea [Recovering/Resolving]
  - Diarrhoea [Recovering/Resolving]
  - Renal failure [Recovering/Resolving]
